FAERS Safety Report 24061703 (Version 1)
Quarter: 2024Q3

REPORT INFORMATION
  Report Type: Spontaneous
  Country: US (occurrence: US)
  Receive Date: 20240708
  Receipt Date: 20240708
  Transmission Date: 20241017
  Serious: Yes (Other)
  Sender: APOTEX
  Company Number: US-APOTEX-2024AP007916

PATIENT
  Age: 69 Year
  Sex: Female

DRUGS (5)
  1. MICAFUNGIN [Suspect]
     Active Substance: MICAFUNGIN SODIUM
     Indication: Product used for unknown indication
     Dosage: UNK
     Route: 065
  2. VANCOMYCIN [Suspect]
     Active Substance: VANCOMYCIN
     Indication: Product used for unknown indication
     Dosage: UNK
     Route: 065
  3. ENOXAPARIN [Suspect]
     Active Substance: ENOXAPARIN
     Indication: Prophylaxis
     Dosage: 40 MILLIGRAM, QD
     Route: 058
     Dates: start: 20210810, end: 20210812
  4. ENOXAPARIN [Suspect]
     Active Substance: ENOXAPARIN
     Dosage: 30 MILLIGRAM, QD
     Route: 058
     Dates: start: 20210816, end: 20210818
  5. ENOXAPARIN [Suspect]
     Active Substance: ENOXAPARIN
     Dosage: 30 MILLIGRAM, QD
     Route: 058
     Dates: start: 20210818, end: 20210925

REACTIONS (1)
  - Intra-abdominal haematoma [Unknown]

NARRATIVE: CASE EVENT DATE: 20210827
